FAERS Safety Report 6038209-6 (Version None)
Quarter: 2009Q1

REPORT INFORMATION
  Report Type: 
  Country: None (occurrence: None)
  Receive Date: 20090113
  Receipt Date: 20090113
  Transmission Date: 20090719
  Serious: Yes (Other)
  Sender: FDA-Public Use
  Company Number: None

PATIENT
  Age: 3 Year
  Sex: Male
  Weight: 20.4119 kg

DRUGS (3)
  1. ABILIFY [Suspect]
     Indication: AUTISM SPECTRUM DISORDER
     Dosage: 1 TEASPOON 2 X'S A DAY PO
     Route: 048
  2. ABILIFY [Suspect]
     Indication: MENTAL DISORDER
     Dosage: 1 TEASPOON 2 X'S A DAY PO
     Route: 048
  3. BUSPIRONE HCL [Suspect]
     Indication: SCHIZOPHRENIA
     Dosage: 1/2 TABLET PO
     Route: 048

REACTIONS (8)
  - AGGRESSION [None]
  - AGITATION [None]
  - ANGER [None]
  - FIGHT IN SCHOOL [None]
  - IMPATIENCE [None]
  - INSOMNIA [None]
  - MOOD ALTERED [None]
  - RESTLESSNESS [None]
